FAERS Safety Report 21230162 (Version 1)
Quarter: 2022Q3

REPORT INFORMATION
  Report Type: Spontaneous
  Country: US (occurrence: US)
  Receive Date: 20220818
  Receipt Date: 20220818
  Transmission Date: 20221026
  Serious: No
  Sender: FDA-Public Use
  Company Number: US-SANOFI-01233271

PATIENT
  Age: 64 Year
  Sex: Female

DRUGS (3)
  1. PLAVIX [Suspect]
     Active Substance: CLOPIDOGREL BISULFATE
  2. ASPIRIN [Concomitant]
     Active Substance: ASPIRIN
  3. OXYGEN [Concomitant]
     Active Substance: OXYGEN

REACTIONS (10)
  - Sluggishness [Unknown]
  - Fatigue [Unknown]
  - Dry mouth [Unknown]
  - Memory impairment [Unknown]
  - Insomnia [Unknown]
  - Dyspnoea [Unknown]
  - Feeling abnormal [Unknown]
  - Anxiety [Unknown]
  - Headache [Unknown]
  - Nausea [Unknown]

NARRATIVE: CASE EVENT DATE: 20220811
